FAERS Safety Report 19452605 (Version 2)
Quarter: 2024Q2

REPORT INFORMATION
  Report Type: Spontaneous
  Country: US (occurrence: US)
  Receive Date: 20210623
  Receipt Date: 20240524
  Transmission Date: 20240716
  Serious: No
  Sender: FDA-Public Use
  Company Number: US-SA-SAC20210622000408

PATIENT
  Age: 48 Year
  Sex: Female
  Weight: 99.79 kg

DRUGS (7)
  1. DUPIXENT [Suspect]
     Active Substance: DUPILUMAB
     Indication: Asthma
     Dosage: 300 MG,QOW
     Route: 058
     Dates: start: 20200708
  2. ACYCLOVIR [Concomitant]
     Active Substance: ACYCLOVIR
  3. BUPROPION [Concomitant]
     Active Substance: BUPROPION
  4. HYDROQUINONE [Concomitant]
     Active Substance: HYDROQUINONE
  5. TRAZODONE [Concomitant]
     Active Substance: TRAZODONE HYDROCHLORIDE
  6. TRETINOIN [Concomitant]
     Active Substance: TRETINOIN
  7. DEXAMPHETAMINUM [Concomitant]

REACTIONS (3)
  - Abdominal pain upper [Recovering/Resolving]
  - Eye inflammation [Unknown]
  - Ocular hyperaemia [Unknown]

NARRATIVE: CASE EVENT DATE: 20200101
